FAERS Safety Report 13928146 (Version 1)
Quarter: 2017Q3

REPORT INFORMATION
  Report Type: Spontaneous
  Country: US (occurrence: US)
  Receive Date: 20170901
  Receipt Date: 20170901
  Transmission Date: 20171127
  Serious: Yes (Other)
  Sender: FDA-Public Use
  Company Number: US-PFIZER INC-2017375477

PATIENT
  Age: 26 Year
  Sex: Female

DRUGS (4)
  1. SODIUM CHLORIDE. [Suspect]
     Active Substance: SODIUM CHLORIDE
     Dosage: 10 ML, UNK
  2. HEPARIN [Concomitant]
     Active Substance: HEPARIN SODIUM
     Indication: LYME DISEASE
     Dosage: 100 UNITS PER ML 5ML FOR WASH
  3. CEFTRIAXONE SODIUM. [Suspect]
     Active Substance: CEFTRIAXONE SODIUM
     Indication: LYME DISEASE
     Dosage: 2 G, 1X/DAY
     Route: 042
  4. WATER BACTERIOSTATIC [Suspect]
     Active Substance: WATER
     Indication: LYME DISEASE
     Dosage: UNK UNK, 1X/DAY
     Route: 042

REACTIONS (4)
  - Product use in unapproved indication [Unknown]
  - Angina pectoris [Recovered/Resolved]
  - Bladder pain [Recovered/Resolved]
  - Renal pain [Recovered/Resolved]
